FAERS Safety Report 8218690-4 (Version None)
Quarter: 2012Q1

REPORT INFORMATION
  Report Type: 
  Country: None (occurrence: None)
  Receive Date: 20120306
  Receipt Date: 20111102
  Transmission Date: 20120608
  Serious: Yes (Other)
  Sender: FDA-Public Use
  Company Number: US-007054

PATIENT
  Age: 46 Year
  Sex: Male

DRUGS (7)
  1. ISOVUE-370 [Suspect]
     Indication: GASTROINTESTINAL DISORDER
     Dosage: 100ML ONCE INTRAVENOUS (NOT OTHERWISE SPECIFIED)
     Route: 042
     Dates: start: 20111026, end: 20111026
  2. ISOVUE-370 [Suspect]
     Indication: ABDOMEN SCAN
     Dosage: 100ML ONCE INTRAVENOUS (NOT OTHERWISE SPECIFIED)
     Route: 042
     Dates: start: 20111026, end: 20111026
  3. SIMVASTATIN [Concomitant]
  4. FISH OIL [Concomitant]
  5. LISINOPRIL [Concomitant]
  6. READI-CAT (BARIUM SULPHATE [Suspect]
     Indication: ABDOMEN SCAN
     Dosage: 900ML ORAL
     Route: 048
     Dates: start: 20111026, end: 20111026
  7. READI-CAT (BARIUM SULPHATE [Suspect]
     Indication: GASTROINTESTINAL DISORDER
     Dosage: 900ML ORAL
     Route: 048
     Dates: start: 20111026, end: 20111026

REACTIONS (1)
  - HYPERSENSITIVITY [None]
